FAERS Safety Report 8551976-2 (Version None)
Quarter: 2012Q3

REPORT INFORMATION
  Report Type: 
  Country: None (occurrence: None)
  Receive Date: 20120730
  Receipt Date: 20120706
  Transmission Date: 20120928
  Serious: No
  Sender: FDA-Public Use
  Company Number: US-ASTRAZENECA-2012SE46297

PATIENT
  Age: 61 Year
  Sex: Male

DRUGS (2)
  1. LORTAB [Concomitant]
     Dosage: 7.5/750 MG, AS REQUIRED
  2. SYMBICORT [Suspect]
     Dosage: 160/4.5 MCG,2 PUFFS TWO TIMES A DAY
     Route: 055
     Dates: start: 20120501

REACTIONS (2)
  - DRUG DOSE OMISSION [None]
  - DYSPNOEA [None]
